FAERS Safety Report 6972825-X (Version None)
Quarter: 2010Q3

REPORT INFORMATION
  Report Type: 
  Country: None (occurrence: None)
  Receive Date: 20100909
  Receipt Date: 20100827
  Transmission Date: 20110219
  Serious: Yes (Hospitalization, Other)
  Sender: FDA-Public Use
  Company Number: DE-ELI_LILLY_AND_COMPANY-DE201008008371

PATIENT
  Age: 78 Year
  Sex: Male

DRUGS (8)
  1. CYMBALTA [Suspect]
     Indication: PAIN IN EXTREMITY
     Dosage: 60 MG, 2/D
     Route: 048
     Dates: start: 20100604, end: 20100703
  2. ASPIRIN [Concomitant]
     Indication: ATRIAL FIBRILLATION
     Dosage: 100 MG, DAILY (1/D)
     Route: 048
     Dates: start: 20100501, end: 20100708
  3. PREDNISOLONE [Concomitant]
     Indication: TEMPORAL ARTERITIS
     Dosage: 10 MG, DAILY (1/D)
     Route: 048
     Dates: start: 20091201
  4. PANTOPRAZOLE SODIUM [Concomitant]
     Indication: PROPHYLAXIS AGAINST GASTROINTESTINAL ULCER
     Dosage: 40 MG, DAILY (1/D)
     Route: 048
     Dates: start: 20080101
  5. CALCILAC KT [Concomitant]
     Indication: OSTEOPOROSIS PROPHYLAXIS
     Dosage: 1 D/F, DAILY (1/D)
     Route: 048
     Dates: start: 20091201
  6. ATACAND [Concomitant]
     Indication: HYPERTENSION
     Dosage: 8 MG, DAILY (1/D)
     Route: 048
     Dates: start: 20060101
  7. AGOMELATIN [Concomitant]
     Indication: DEPRESSION
     Dosage: 25 MG, 2/D
     Route: 048
     Dates: start: 20090101, end: 20100601
  8. TAMSULOSIN HCL [Concomitant]
     Indication: BENIGN PROSTATIC HYPERPLASIA
     Dosage: 0.4 MG, DAILY (1/D)
     Route: 048

REACTIONS (6)
  - FALL [None]
  - HAEMATOMA [None]
  - HYPOKALAEMIA [None]
  - HYPONATRAEMIA [None]
  - MYOCARDIAL INFARCTION [None]
  - SHOCK HAEMORRHAGIC [None]
